FAERS Safety Report 8934669 (Version 2)
Quarter: 2012Q4

REPORT INFORMATION
  Report Type: 
  Country: JP (occurrence: JP)
  Receive Date: 20121129
  Receipt Date: 20121211
  Transmission Date: 20130627
  Serious: Yes (Hospitalization)
  Sender: FDA-Public Use
  Company Number: JP-EISAI INC-E2090-02422-SPO-JP

PATIENT
  Age: 4 Year
  Sex: Male

DRUGS (6)
  1. EXCEGRAN [Suspect]
     Indication: EPILEPSY
     Route: 048
     Dates: start: 20121025, end: 20121027
  2. EXCEGRAN [Suspect]
     Dosage: 100 mg/day
     Route: 048
     Dates: start: 20121028, end: 20121030
  3. EXCEGRAN [Suspect]
     Dosage: 150 mg/ day
     Route: 048
     Dates: start: 20121031, end: 20121105
  4. EXCEGRAN [Suspect]
     Dosage: 200 mg/day
     Route: 048
     Dates: start: 20121106, end: 20121113
  5. PREDNISOLONE [Concomitant]
     Indication: DRUG ERUPTION
     Dosage: 10 mg/day
     Route: 048
     Dates: start: 20121023, end: 20121030
  6. PREDNISOLONE [Concomitant]
     Dosage: 5 mg/day
     Route: 048
     Dates: start: 20121031, end: 20121106

REACTIONS (1)
  - Stevens-Johnson syndrome [Not Recovered/Not Resolved]
